FAERS Safety Report 8090361-7 (Version None)
Quarter: 2012Q1

REPORT INFORMATION
  Report Type: 
  Country: None (occurrence: None)
  Receive Date: 20120129
  Receipt Date: 20111129
  Transmission Date: 20120608
  Serious: No
  Sender: FDA-Public Use
  Company Number: US-ABBOTT-11P-163-0879567-00

PATIENT
  Age: 55 Year
  Sex: Female

DRUGS (13)
  1. TOPROL-XL [Concomitant]
     Indication: HYPERTENSION
     Dosage: IN AM
  2. HUMIRA [Suspect]
     Indication: PSORIASIS
     Dates: start: 20111101
  3. K PLUS [Concomitant]
     Indication: PRODUCT USED FOR UNKNOWN INDICATION
     Dosage: IN AM
  4. ZETIA [Concomitant]
     Indication: BLOOD CHOLESTEROL INCREASED
     Dosage: IN AM
  5. M.V.I. [Concomitant]
     Indication: PRODUCT USED FOR UNKNOWN INDICATION
  6. PRILOSEC [Concomitant]
     Indication: GASTROOESOPHAGEAL REFLUX DISEASE
     Dosage: IN AM
  7. NEURONTIN [Concomitant]
     Indication: FIBROMYALGIA
  8. LASIX [Concomitant]
     Indication: PRODUCT USED FOR UNKNOWN INDICATION
  9. KETOPROFEN [Concomitant]
     Indication: PRODUCT USED FOR UNKNOWN INDICATION
     Dosage: IN AM
  10. WELLBUTRIN XL [Concomitant]
     Indication: PRODUCT USED FOR UNKNOWN INDICATION
     Dosage: IN AM
  11. NEURONTIN [Concomitant]
     Indication: NEURALGIA
     Dosage: 1 IN AM AND 2 AT NIGHT
  12. AMITRIPTYLINE HCL [Concomitant]
     Indication: PRODUCT USED FOR UNKNOWN INDICATION
     Dosage: AT NIGHT
  13. MAGNESIUM [Concomitant]
     Indication: MUSCLE TWITCHING

REACTIONS (2)
  - INJECTION SITE PAIN [None]
  - CONTUSION [None]
